FAERS Safety Report 17052168 (Version 1)
Quarter: 2019Q4

REPORT INFORMATION
  Report Type: Spontaneous
  Country: US (occurrence: US)
  Receive Date: 20191119
  Receipt Date: 20191119
  Transmission Date: 20200122
  Serious: No
  Sender: FDA-Public Use
  Company Number: None

PATIENT
  Age: 29 Year
  Sex: Male
  Weight: 77.56 kg

DRUGS (6)
  1. VAGAL NERVE STIMULATOR [Suspect]
     Active Substance: DEVICE
     Dates: start: 20191107
  2. VIMPAT [Concomitant]
     Active Substance: LACOSAMIDE
  3. VIMPAT 100 [Concomitant]
  4. DILANTIN [Concomitant]
     Active Substance: PHENYTOIN
  5. EPIDIOLEX [Suspect]
     Active Substance: CANNABIDIOL
     Indication: EPILEPSY
     Route: 048
     Dates: start: 20190221, end: 20191119
  6. DEPAKOTE [Concomitant]
     Active Substance: DIVALPROEX SODIUM

REACTIONS (5)
  - Vomiting [None]
  - Confusional state [None]
  - Dizziness [None]
  - Altered state of consciousness [None]
  - Decreased appetite [None]

NARRATIVE: CASE EVENT DATE: 20191117
